FAERS Safety Report 22373043 (Version 1)
Quarter: 2023Q2

REPORT INFORMATION
  Report Type: Spontaneous
  Country: DE (occurrence: None)
  Receive Date: 20230526
  Receipt Date: 20230526
  Transmission Date: 20230721
  Serious: Yes (Life-Threatening)
  Sender: FDA-Public Use
  Company Number: 2023A120043

PATIENT
  Sex: Male

DRUGS (3)
  1. IMFINZI [Suspect]
     Active Substance: DURVALUMAB
     Indication: Chemotherapy
     Route: 042
  2. CISPLATIN [Concomitant]
     Active Substance: CISPLATIN
  3. GENCYTAMINE [Concomitant]

REACTIONS (1)
  - Thrombocytopenia [Recovering/Resolving]
